FAERS Safety Report 10032932 (Version 2)
Quarter: 2014Q1

REPORT INFORMATION
  Report Type: Spontaneous
  Country: US (occurrence: US)
  Receive Date: 20140324
  Receipt Date: 20140324
  Transmission Date: 20141002
  Serious: No
  Sender: FDA-Public Use
  Company Number: US-SHIONOGI, INC-2013000380

PATIENT
  Age: 60 Year
  Sex: Female
  Weight: 74.38 kg

DRUGS (6)
  1. OSPHENA [Suspect]
     Indication: DYSPAREUNIA
     Dosage: UNK, QD
     Route: 048
     Dates: start: 20131119
  2. OSPHENA [Suspect]
     Indication: ATROPHIC VULVOVAGINITIS
  3. OSPHENA [Suspect]
     Indication: VULVOVAGINAL PRURITUS
  4. NORVASC [Concomitant]
     Indication: BLOOD PRESSURE
     Dosage: UNK
     Route: 065
  5. DIURETICS [Concomitant]
     Indication: BLOOD PRESSURE
     Dosage: UNK
     Route: 065
  6. ZOCOR [Concomitant]
     Indication: PRODUCT USED FOR UNKNOWN INDICATION
     Dosage: UNK
     Route: 065

REACTIONS (5)
  - Micturition urgency [Unknown]
  - Pollakiuria [Unknown]
  - Nocturia [Unknown]
  - Anxiety [Unknown]
  - Hyperhidrosis [Unknown]
